FAERS Safety Report 6891447-2 (Version None)
Quarter: 2010Q3

REPORT INFORMATION
  Report Type: 
  Country: None (occurrence: None)
  Receive Date: 20100731
  Receipt Date: 20070509
  Transmission Date: 20110219
  Serious: No
  Sender: FDA-Public Use
  Company Number: US-PFIZER INC-2007037420

PATIENT

DRUGS (1)
  1. FLAGYL [Suspect]
     Route: 064
     Dates: start: 20070425

REACTIONS (1)
  - DRUG EXPOSURE DURING PREGNANCY [None]
